FAERS Safety Report 8547164 (Version 3)
Quarter: 2013Q2

REPORT INFORMATION
  Report Type: Spontaneous
  Country: US (occurrence: US)
  Receive Date: 20120504
  Receipt Date: 20130522
  Transmission Date: 20140414
  Serious: Yes (Other)
  Sender: FDA-Public Use
  Company Number: US-ROCHE-788378

PATIENT
  Sex: Female
  Weight: 52.21 kg

DRUGS (1)
  1. ACCUTANE [Suspect]
     Indication: ACNE
     Route: 065
     Dates: start: 1983, end: 1984

REACTIONS (6)
  - Colitis ulcerative [Unknown]
  - Inflammatory bowel disease [Unknown]
  - Rectal polyp [Unknown]
  - Anal fissure [Unknown]
  - Depression [Unknown]
  - Irritable bowel syndrome [Unknown]
